FAERS Safety Report 24322316 (Version 1)
Quarter: 2024Q3

REPORT INFORMATION
  Report Type: Spontaneous
  Country: CA (occurrence: CA)
  Receive Date: 20240916
  Receipt Date: 20240916
  Transmission Date: 20241017
  Serious: Yes (Death)
  Sender: TEVA
  Company Number: CA-TEVA-VS-3241599

PATIENT
  Age: 66 Year
  Sex: Male

DRUGS (7)
  1. LACOSAMIDE [Suspect]
     Active Substance: LACOSAMIDE
     Indication: Product used for unknown indication
     Route: 065
  2. CLONAZEPAM [Suspect]
     Active Substance: CLONAZEPAM
     Indication: Product used for unknown indication
     Route: 065
  3. MOCLOBEMIDE [Suspect]
     Active Substance: MOCLOBEMIDE
     Indication: Product used for unknown indication
     Route: 065
  4. RISPERIDONE [Suspect]
     Active Substance: RISPERIDONE
     Indication: Product used for unknown indication
     Route: 065
  5. LEVETIRACETAM [Suspect]
     Active Substance: LEVETIRACETAM
     Indication: Product used for unknown indication
     Route: 065
  6. LAMOTRIGINE [Suspect]
     Active Substance: LAMOTRIGINE
     Indication: Product used for unknown indication
     Route: 065
  7. PHENYTOIN [Suspect]
     Active Substance: PHENYTOIN
     Indication: Product used for unknown indication
     Route: 065

REACTIONS (8)
  - Accidental death [Fatal]
  - Skin warm [Fatal]
  - Serotonin syndrome [Fatal]
  - General physical health deterioration [Fatal]
  - Toxicity to various agents [Fatal]
  - Loss of consciousness [Fatal]
  - Wrong patient received product [Fatal]
  - Erythema [Fatal]
